FAERS Safety Report 11390556 (Version 1)
Quarter: 2015Q3

REPORT INFORMATION
  Report Type: Spontaneous
  Country: US (occurrence: US)
  Receive Date: 20150818
  Receipt Date: 20150818
  Transmission Date: 20151125
  Serious: No
  Sender: FDA-Public Use
  Company Number: US-ROCHE-1391810

PATIENT
  Sex: Female

DRUGS (4)
  1. PEGASYS [Suspect]
     Active Substance: PEGINTERFERON ALFA-2A
     Indication: CHRONIC HEPATITIS C
     Route: 058
     Dates: start: 20140312
  2. RIBASPHERE [Suspect]
     Active Substance: RIBAVIRIN
     Indication: CHRONIC HEPATITIS C
     Dosage: DIVIDED DOSE 600/400
     Route: 065
     Dates: start: 20140312
  3. RIBASPHERE [Suspect]
     Active Substance: RIBAVIRIN
     Dosage: DIVIDED DOSES 400/200
     Route: 065
     Dates: start: 201404
  4. SOVALDI [Suspect]
     Active Substance: SOFOSBUVIR
     Indication: CHRONIC HEPATITIS C
     Route: 065

REACTIONS (1)
  - Accidental exposure to product [Unknown]
